FAERS Safety Report 9760433 (Version 1)
Quarter: 2013Q4

REPORT INFORMATION
  Report Type: Spontaneous
  Country: TW (occurrence: TW)
  Receive Date: 20131216
  Receipt Date: 20131216
  Transmission Date: 20140711
  Serious: Yes (Hospitalization)
  Sender: FDA-Public Use
  Company Number: TW-SA-2013SA126949

PATIENT
  Age: 41 Year
  Sex: Male

DRUGS (4)
  1. PLAVIX [Suspect]
     Indication: MYOCARDIAL ISCHAEMIA
     Route: 048
     Dates: start: 20130906, end: 20131128
  2. BOKEY [Concomitant]
  3. HERBESSER [Concomitant]
  4. SIGMART [Concomitant]

REACTIONS (1)
  - Chest discomfort [Recovered/Resolved]
